FAERS Safety Report 19947860 (Version 1)
Quarter: 2021Q4

REPORT INFORMATION
  Report Type: Spontaneous
  Country: FR (occurrence: FR)
  Receive Date: 20211012
  Receipt Date: 20211012
  Transmission Date: 20220303
  Serious: Yes (Other)
  Sender: FDA-Public Use
  Company Number: FR-DRREDDYS-GER/FRA/20/0123154

PATIENT
  Age: 74 Year
  Sex: Male

DRUGS (13)
  1. DEXAMETHASONE [Suspect]
     Active Substance: DEXAMETHASONE
     Indication: Product used for unknown indication
     Dosage: DUE TO THE COVID PERIOD
     Route: 065
  2. DEXAMETHASONE [Suspect]
     Active Substance: DEXAMETHASONE
     Route: 065
  3. REVLIMID [Suspect]
     Active Substance: LENALIDOMIDE
     Indication: Product used for unknown indication
     Route: 065
  4. REVLIMID [Suspect]
     Active Substance: LENALIDOMIDE
  5. BORTEZOMIB [Suspect]
     Active Substance: BORTEZOMIB
     Indication: Product used for unknown indication
     Dosage: PROTOCOL VRD2 VELCADE SC WEEKLY (REDDY PHARMA 3,5 MG, POUDRE POUR SOLUTION INJECTABLE)
     Route: 058
     Dates: start: 20200205
  6. BORTEZOMIB [Suspect]
     Active Substance: BORTEZOMIB
     Dosage: PROTOCOL VRD2 VELCADE SC WEEKLY
     Route: 058
  7. PENTACARINAT AEROSOL [Concomitant]
     Indication: Product used for unknown indication
     Route: 065
  8. ASPEGIC [Concomitant]
     Indication: Product used for unknown indication
     Route: 065
  9. ORACILLINE 1MUI [Concomitant]
     Indication: Product used for unknown indication
     Route: 065
  10. NIFEDIPINE [Concomitant]
     Active Substance: NIFEDIPINE
     Indication: Product used for unknown indication
     Route: 065
  11. CLODRONATE DISODIUM [Concomitant]
     Active Substance: CLODRONATE DISODIUM
     Indication: Product used for unknown indication
     Route: 065
  12. PANTOPRAZOLE [Concomitant]
     Active Substance: PANTOPRAZOLE
     Indication: Product used for unknown indication
     Route: 065
  13. VALACYCLOVIR HYDROCHLORIDE [Concomitant]
     Active Substance: VALACYCLOVIR HYDROCHLORIDE
     Indication: Product used for unknown indication
     Route: 065

REACTIONS (4)
  - Thrombocytopenia [Unknown]
  - Injection site erythema [Recovering/Resolving]
  - Injection site reaction [Recovering/Resolving]
  - Injection site pruritus [Recovering/Resolving]

NARRATIVE: CASE EVENT DATE: 20200226
